FAERS Safety Report 9502690 (Version 3)
Quarter: 2013Q4

REPORT INFORMATION
  Report Type: Spontaneous
  Country: US (occurrence: None)
  Receive Date: 20130107
  Receipt Date: 20131226
  Transmission Date: 20140711
  Serious: Yes (Other)
  Sender: FDA-Public Use
  Company Number: PHEH2012US021129

PATIENT
  Age: 53 Year
  Sex: Female
  Weight: 88.4 kg

DRUGS (6)
  1. GILENYA [Suspect]
     Indication: MULTIPLE SCLEROSIS
     Route: 048
     Dates: start: 20121025
  2. WARFARIN ( WARFARIN) TABLET [Concomitant]
  3. ADVIL (IBUPROFEN) CAPSULE [Concomitant]
  4. FERROUS SULPHATE ( FERROUS SULFATE) TABLET [Concomitant]
  5. ALEVE ( NAPROXEN SODIUM) TABLET [Concomitant]
  6. MULTI-VIT ( VITAMINS NOS) [Concomitant]

REACTIONS (8)
  - Hypoaesthesia [None]
  - Muscular weakness [None]
  - Speech disorder [None]
  - Dysarthria [None]
  - Paraesthesia [None]
  - Condition aggravated [None]
  - Balance disorder [None]
  - Vision blurred [None]
